FAERS Safety Report 18681791 (Version 1)
Quarter: 2020Q4

REPORT INFORMATION
  Report Type: Spontaneous
  Country: US (occurrence: US)
  Receive Date: 20201229
  Receipt Date: 20201229
  Transmission Date: 20210114
  Serious: Yes (Hospitalization, Other)
  Sender: FDA-Public Use
  Company Number: US-PURDUE-USA-2020-0190760

PATIENT

DRUGS (3)
  1. OXYCONTIN [Suspect]
     Active Substance: OXYCODONE HYDROCHLORIDE
     Indication: SCOLIOSIS
  2. FENTANYL. [Suspect]
     Active Substance: FENTANYL
     Indication: BACK PAIN
     Dosage: UNKNOWN
     Route: 065
  3. OXYCONTIN [Suspect]
     Active Substance: OXYCODONE HYDROCHLORIDE
     Indication: BACK PAIN
     Dosage: UNKNOWN
     Route: 065

REACTIONS (19)
  - Constipation [Unknown]
  - Pancreatitis [Unknown]
  - Restless legs syndrome [Unknown]
  - Drug dependence [Unknown]
  - Diarrhoea [Unknown]
  - Insomnia [Unknown]
  - Tooth disorder [Unknown]
  - Headache [Unknown]
  - Mood swings [Unknown]
  - Decreased appetite [Unknown]
  - Back pain [Unknown]
  - Vomiting [Unknown]
  - Drug intolerance [Unknown]
  - Anxiety [Unknown]
  - Chills [Unknown]
  - Withdrawal syndrome [Unknown]
  - Ketoacidosis [Unknown]
  - Hyperhidrosis [None]
  - Depression [Unknown]
